FAERS Safety Report 17278206 (Version 1)
Quarter: 2020Q1

REPORT INFORMATION
  Report Type: Spontaneous
  Country: CN (occurrence: CN)
  Receive Date: 20200116
  Receipt Date: 20200116
  Transmission Date: 20200409
  Serious: Yes (Hospitalization)
  Sender: FDA-Public Use
  Company Number: CN-TOPROL ACQUISITION LLC-2020-TOP-000018

PATIENT
  Age: 70 Year
  Sex: Female

DRUGS (12)
  1. METOPROLOL SUCCINATE. [Suspect]
     Active Substance: METOPROLOL SUCCINATE
     Indication: CARDIAC FAILURE CHRONIC
  2. NIFEDIPINE. [Concomitant]
     Active Substance: NIFEDIPINE
  3. BAYASPIRIN [Concomitant]
     Active Substance: ASPIRIN
     Dosage: 1 DF, QD
     Route: 048
     Dates: start: 201912
  4. METOPROLOL SUCCINATE. [Suspect]
     Active Substance: METOPROLOL SUCCINATE
     Indication: ANGINA PECTORIS
  5. ATORVASTATIN [Concomitant]
     Active Substance: ATORVASTATIN
     Dosage: 20 MG, QD
     Route: 048
     Dates: start: 201912
  6. METFORMIN [Concomitant]
     Active Substance: METFORMIN HYDROCHLORIDE
     Indication: DIABETES MELLITUS
     Dosage: UNK, 2 TIMES A DAY, EACH 1 PILL AFTER BREAKFAST AND DINNER
     Route: 048
  7. METOPROLOL SUCCINATE. [Suspect]
     Active Substance: METOPROLOL SUCCINATE
     Indication: HYPERTENSION
     Dosage: 47.5 MG, HALF TABLET A DAY
     Dates: start: 201912
  8. METOPROLOL SUCCINATE. [Suspect]
     Active Substance: METOPROLOL SUCCINATE
     Indication: LEFT VENTRICULAR DYSFUNCTION
  9. INSULIN [Concomitant]
     Active Substance: INSULIN NOS
     Indication: DIABETES MELLITUS
     Dosage: 30 UNITS IN EVERY MORNING, 26 UNITS IN EVERY EVENING
     Dates: start: 201904
  10. CALCIUM [Concomitant]
     Active Substance: CALCIUM
     Indication: BLOOD CALCIUM DECREASED
     Dosage: TWICE A DAY, EACH ONCE AFTER BREAKFAST AND DINNER
     Route: 048
  11. BUTYLPHTHALIDE [Concomitant]
     Active Substance: BUTYLPHTHALIDE
     Dosage: 3 TIMES AFTER MEALS EVERY DAY, 2 PILLS/TIMES
     Route: 048
     Dates: start: 201912
  12. PROPOLIS [Concomitant]
     Active Substance: PROPOLIS WAX
     Indication: COMBINED IMMUNODEFICIENCY
     Dosage: UNK, EACH ONCE AFTER LUNCH EVERY DAY
     Route: 048

REACTIONS (7)
  - Dizziness [Recovered/Resolved]
  - Blood pressure increased [Recovered/Resolved]
  - Movement disorder [Unknown]
  - Vertigo [Unknown]
  - Asthenia [Unknown]
  - Nausea [Recovered/Resolved]
  - Blood glucose increased [Unknown]

NARRATIVE: CASE EVENT DATE: 201904
